FAERS Safety Report 23434023 (Version 2)
Quarter: 2024Q1

REPORT INFORMATION
  Report Type: Spontaneous
  Country: CA (occurrence: CA)
  Receive Date: 20240123
  Receipt Date: 20240125
  Transmission Date: 20240409
  Serious: Yes (Other)
  Sender: FDA-Public Use
  Company Number: CA-PFIZER INC-202400018193

PATIENT
  Age: 87 Year
  Sex: Female

DRUGS (15)
  1. RUXIENCE [Suspect]
     Active Substance: RITUXIMAB-PVVR
     Indication: Rheumatoid arthritis
     Dosage: 1000 MG, DAY 1 AND DAY 15
     Route: 042
     Dates: start: 20210412, end: 20210427
  2. RUXIENCE [Suspect]
     Active Substance: RITUXIMAB-PVVR
     Dosage: 1000 MG, DAY 1 AND DAY 15
     Route: 042
     Dates: start: 20211027, end: 20211110
  3. RUXIENCE [Suspect]
     Active Substance: RITUXIMAB-PVVR
     Dosage: 1000 MG, DAY 1 AND DAY 15
     Route: 042
     Dates: start: 20211110
  4. RUXIENCE [Suspect]
     Active Substance: RITUXIMAB-PVVR
     Dosage: 1000 MG, DAY 1 AND DAY 15
     Route: 042
     Dates: start: 20211130
  5. ACETAMINOPHEN [Concomitant]
     Active Substance: ACETAMINOPHEN
     Dosage: 500 MG, 1X/DAY (0.50 TAB SWALLOW, ORAL ONCE DAILY PRN)
     Route: 048
  6. BISOPROLOL [Concomitant]
     Active Substance: BISOPROLOL\BISOPROLOL FUMARATE
     Dosage: 1 DF, UNKNOWN START DATE- TAKES IN AM 1/4  TABLET
  7. BISOPROLOL FUMARATE [Concomitant]
     Active Substance: BISOPROLOL FUMARATE
     Dosage: 5 MG, 1X/DAY (0.50 TAB SWALLOW, ORAL ONCE DAILY)
  8. CYCLOSPORINE [Concomitant]
     Active Substance: CYCLOSPORINE
     Dosage: 0.05 %, 2X/DAY (1 DROP EACH EYE BID)
  9. DILTIAZEM [Concomitant]
     Active Substance: DILTIAZEM
     Dosage: 180 MG, FREQUENCY NOT PROVIDED
     Route: 065
  10. RITUXIMAB [Concomitant]
     Active Substance: RITUXIMAB
     Dosage: 10 MG/ML (1000 MG WEEK O AND WEEK 2)
     Dates: start: 202009, end: 202111
  11. TYLENOL ARTHRITIS PAIN [Concomitant]
     Active Substance: ACETAMINOPHEN
     Dosage: 1 DF, AS NEEDED (DOSAGE INFO: NOT PROVIDED. PRN)
     Route: 065
  12. COVID-19 VACCINE [Concomitant]
     Indication: COVID-19 immunisation
     Dosage: DOSE NUMBER UNKNOWN, SINGLE
     Dates: start: 202312, end: 202312
  13. PNEUMOCOCCAL 13-VALENT CONJUGATE VACCINE [Concomitant]
     Active Substance: PNEUMOCOCCAL 13-VALENT CONJUGATE VACCINE
     Indication: Pneumococcal immunisation
     Dosage: UNK UNK, SINGLE (PNEUMONIA X 2)
  14. RAMIPRIL [Concomitant]
     Active Substance: RAMIPRIL
     Dosage: 1 DF, UNKNOWN START DATE -TAKES IN PM
  15. SHINGRIX [Concomitant]
     Active Substance: RECOMBINANT VARICELLA ZOSTER VIRUS (VZV) GLYCOPROTEIN E
     Indication: Immunisation
     Dosage: UNK, SINGLE

REACTIONS (9)
  - Sjogren^s syndrome [Unknown]
  - Disease progression [Unknown]
  - Rheumatoid arthritis [Unknown]
  - Elbow deformity [Unknown]
  - Eye injury [Not Recovered/Not Resolved]
  - Tooth disorder [Unknown]
  - Joint injury [Unknown]
  - Blood pressure increased [Unknown]
  - Rheumatoid nodule [Unknown]

NARRATIVE: CASE EVENT DATE: 20230401
